FAERS Safety Report 8472679-9 (Version None)
Quarter: 2012Q2

REPORT INFORMATION
  Report Type: 
  Country: None (occurrence: None)
  Receive Date: 20120627
  Receipt Date: 20120615
  Transmission Date: 20120825
  Serious: Yes (Other)
  Sender: FDA-Public Use
  Company Number: JP-VERTEX PHARMACEUTICALS INC.-AE-2012-007726

PATIENT
  Age: 55 Year
  Sex: Female

DRUGS (13)
  1. RIBAVIRIN [Concomitant]
     Route: 048
     Dates: start: 20120416
  2. TELAVIC (TELAPREVIR) [Suspect]
     Indication: HEPATITIS C
     Route: 048
     Dates: start: 20120313
  3. RIBAVIRIN [Concomitant]
     Route: 048
     Dates: start: 20120319, end: 20120415
  4. EPADEL S [Concomitant]
     Route: 048
  5. RIBAVIRIN [Concomitant]
     Indication: HEPATITIS C
     Route: 048
     Dates: start: 20120313, end: 20120318
  6. LIVALO [Concomitant]
     Route: 048
  7. CLARITIN REDITABS [Concomitant]
     Route: 048
  8. PEGINTERFERON ALFA-2B [Concomitant]
     Route: 058
     Dates: start: 20120313
  9. FEROTYM [Concomitant]
     Route: 048
  10. MAGLAX [Concomitant]
     Route: 048
  11. LIVALO [Concomitant]
     Route: 048
  12. TELAVIC (TELAPREVIR) [Suspect]
     Route: 048
     Dates: start: 20120501, end: 20120513
  13. RABEPRAZOLE SODIUM [Concomitant]
     Route: 048

REACTIONS (2)
  - ANAEMIA [None]
  - RASH [None]
